FAERS Safety Report 15046513 (Version 1)
Quarter: 2018Q2

REPORT INFORMATION
  Report Type: Spontaneous
  Country: FR (occurrence: FR)
  Receive Date: 20180621
  Receipt Date: 20180621
  Transmission Date: 20180711
  Serious: Yes (Other)
  Sender: FDA-Public Use
  Company Number: FR-TEVA-2018-FR-911659

PATIENT
  Age: 61 Year
  Sex: Female

DRUGS (1)
  1. AMOXICILLINE TEVA 1 G, COMPRIM? DISPERSIBLE [Suspect]
     Active Substance: AMOXICILLIN
     Indication: SYNOVITIS
     Dosage: 3 DOSAGE FORMS DAILY;
     Route: 048
     Dates: start: 20180426, end: 20180426

REACTIONS (3)
  - Burning sensation [Recovered/Resolved]
  - Formication [Recovered/Resolved]
  - Hypersensitivity [Recovered/Resolved]

NARRATIVE: CASE EVENT DATE: 20180426
